FAERS Safety Report 10772413 (Version 1)
Quarter: 2015Q1

REPORT INFORMATION
  Report Type: Spontaneous
  Country: TR (occurrence: TR)
  Receive Date: 20150207
  Receipt Date: 20150207
  Transmission Date: 20150721
  Serious: Yes (Other)
  Sender: FDA-Public Use
  Company Number: TR-ACCORD-028476

PATIENT
  Age: 25 Year
  Sex: Female

DRUGS (1)
  1. METHOTREXATE [Suspect]
     Active Substance: METHOTREXATE
     Indication: ECTOPIC PREGNANCY
     Dosage: ON DAY 1.?ALSO, AN ADDITIONAL DOSE OF MTX WAS GIVEN.
     Route: 030

REACTIONS (1)
  - Arthritis bacterial [Recovering/Resolving]
